FAERS Safety Report 9314907 (Version 1)
Quarter: 2013Q2

REPORT INFORMATION
  Report Type: Report from Study
  Country: TR (occurrence: TR)
  Receive Date: 20130529
  Receipt Date: 20130529
  Transmission Date: 20140414
  Serious: Yes (Other)
  Sender: FDA-Public Use
  Company Number: TR-VERTEX PHARMACEUTICALS INC-000000000000000219

PATIENT
  Age: 48 Year
  Sex: Male
  Weight: 60 kg

DRUGS (3)
  1. VX-950 (TELAPREVIR) [Suspect]
     Indication: HEPATITIS C
     Dosage: DOSAGE FORM: TABLET
     Route: 048
     Dates: start: 20111210
  2. PEGINTERFERON ALFA 2B [Suspect]
     Indication: HEPATITIS C
     Dosage: DOSAGE FORM: UNSPECIFIED
     Route: 065
     Dates: start: 20111210
  3. RIBAVIRIN [Suspect]
     Indication: HEPATITIS C
     Dosage: DOSAGE FORM: UNSPECIFIED, PATIENT USE 1000 MG/DAY
     Route: 065
     Dates: start: 20111210

REACTIONS (8)
  - Haemoptysis [Unknown]
  - Platelet count decreased [Recovered/Resolved]
  - Anaemia [Recovered/Resolved]
  - White blood cell count decreased [Recovered/Resolved]
  - Cough [Unknown]
  - Serum ferritin increased [Recovered/Resolved]
  - Blood uric acid increased [Recovered/Resolved]
  - Pruritus [Recovered/Resolved]
